FAERS Safety Report 10583317 (Version 2)
Quarter: 2015Q1

REPORT INFORMATION
  Report Type: Spontaneous
  Country: US (occurrence: None)
  Receive Date: 20141112
  Receipt Date: 20150204
  Transmission Date: 20150720
  Serious: Yes (Death)
  Sender: FDA-Public Use
  Company Number: KAD201411-001434

PATIENT

DRUGS (4)
  1. TACROLIMUS (TACROLIMUS) [Suspect]
     Active Substance: TACROLIMUS
  2. RIBAVIRIN (RIBAVIRIN) [Suspect]
     Active Substance: RIBAVIRIN
     Indication: HEPATITIS C
  3. PEGYLATED INTERFERON NOS [Suspect]
     Active Substance: PEGINTERFERON ALFA-2A OR PEGINTERFERON ALFA-2B OR PEGINTERFERON BETA-1A OR PEGINTERFERON LAMBDA-1A
     Indication: HEPATITIS C
  4. NITAZOXANIDE (NITAZOXANIDE) [Suspect]
     Active Substance: NITAZOXANIDE
     Indication: HEPATITIS C

REACTIONS (2)
  - Neoplasm malignant [None]
  - Pulmonary haemorrhage [None]
